FAERS Safety Report 25203494 (Version 1)
Quarter: 2025Q2

REPORT INFORMATION
  Report Type: Spontaneous
  Country: CH (occurrence: CH)
  Receive Date: 20250416
  Receipt Date: 20250416
  Transmission Date: 20250717
  Serious: Yes (Other)
  Sender: TEVA
  Company Number: CH-TEVA-VS-3309575

PATIENT
  Age: 18 Year
  Sex: Male

DRUGS (11)
  1. ISOTRETINOIN [Suspect]
     Active Substance: ISOTRETINOIN
     Indication: Product used for unknown indication
     Dosage: MEPHA
     Route: 048
     Dates: start: 20220502
  2. ISOTRETINOIN [Suspect]
     Active Substance: ISOTRETINOIN
     Indication: Product used for unknown indication
     Dosage: MEPHA
     Route: 048
  3. PREDNISONE [Concomitant]
     Active Substance: PREDNISONE
     Indication: Product used for unknown indication
  4. DOXYCYCLINE [Suspect]
     Active Substance: DOXYCYCLINE
     Indication: Product used for unknown indication
     Route: 065
     Dates: start: 20221212
  5. MINOCYCLINE [Suspect]
     Active Substance: MINOCYCLINE HYDROCHLORIDE
     Indication: Inflammation
     Route: 065
     Dates: start: 20230308, end: 20240410
  6. MINOCYCLINE [Suspect]
     Active Substance: MINOCYCLINE HYDROCHLORIDE
     Indication: Inflammation
     Route: 065
     Dates: start: 20230608, end: 20230914
  7. MINOCYCLINE [Suspect]
     Active Substance: MINOCYCLINE HYDROCHLORIDE
     Indication: Inflammation
     Route: 065
     Dates: start: 202205, end: 20220801
  8. AKLIEF [Suspect]
     Active Substance: TRIFAROTENE
     Indication: Product used for unknown indication
     Route: 061
     Dates: start: 20221010
  9. DISODIUM UNDECYLENIC MONOETHANOLAMIDE SULFOSUCCINATE [Suspect]
     Active Substance: DISODIUM UNDECYLENIC MONOETHANOLAMIDE SULFOSUCCINATE
     Indication: Product used for unknown indication
     Route: 065
     Dates: start: 20221010
  10. DAPSONE [Suspect]
     Active Substance: DAPSONE
     Indication: Product used for unknown indication
     Route: 065
     Dates: start: 20230421, end: 20230623
  11. EPIDUO [Suspect]
     Active Substance: ADAPALENE\BENZOYL PEROXIDE
     Indication: Product used for unknown indication
     Route: 065
     Dates: start: 20230914, end: 202404

REACTIONS (2)
  - Acne fulminans [Unknown]
  - Acne [Unknown]
